FAERS Safety Report 20842590 (Version 1)
Quarter: 2022Q2

REPORT INFORMATION
  Report Type: Spontaneous
  Country: BR (occurrence: BR)
  Receive Date: 20220518
  Receipt Date: 20220518
  Transmission Date: 20220720
  Serious: Yes (Death, Hospitalization)
  Sender: FDA-Public Use
  Company Number: BR-ABBVIE-22K-020-4398670-00

PATIENT
  Age: 46 Year
  Sex: Male
  Weight: 90 kg

DRUGS (1)
  1. HUMIRA [Suspect]
     Active Substance: ADALIMUMAB
     Indication: Rheumatoid arthritis
     Route: 058

REACTIONS (3)
  - Pulmonary thrombosis [Fatal]
  - Pain [Recovering/Resolving]
  - Hospitalisation [Recovered/Resolved]

NARRATIVE: CASE EVENT DATE: 20220403
